FAERS Safety Report 9454579 (Version 1)
Quarter: 2013Q3

REPORT INFORMATION
  Report Type: Spontaneous
  Country: US (occurrence: None)
  Receive Date: 20130808
  Receipt Date: 20130808
  Transmission Date: 20140515
  Serious: Yes (Life-Threatening)
  Sender: FDA-Public Use
  Company Number: 1713747-2013-99926

PATIENT
  Age: 63 Year
  Sex: Male
  Weight: 83.6 kg

DRUGS (1)
  1. 0.9% SODIUM CHLORIDE INJECTION, USP IN MINI-BAG PLUS CONTAINER [Suspect]
     Indication: FLUID REPLACEMENT
     Dosage: 100-300ML, PRN IV, (42)
     Route: 042
     Dates: start: 20130624

REACTIONS (2)
  - Unresponsive to stimuli [None]
  - Resuscitation [None]
